FAERS Safety Report 15599828 (Version 1)
Quarter: 2018Q4

REPORT INFORMATION
  Report Type: Spontaneous
  Country: US (occurrence: US)
  Receive Date: 20181108
  Receipt Date: 20181108
  Transmission Date: 20190205
  Serious: Yes (Hospitalization)
  Sender: FDA-Public Use
  Company Number: US-VIFOR (INTERNATIONAL) INC.-VIT-2018-11045

PATIENT
  Sex: Male

DRUGS (25)
  1. CARBAMAZEPINE. [Concomitant]
     Active Substance: CARBAMAZEPINE
  2. SODIUM CARBONATE ANHYDROUS [Concomitant]
  3. RANITIDINE HCL [Concomitant]
     Active Substance: RANITIDINE HYDROCHLORIDE
  4. METOLAZONE. [Concomitant]
     Active Substance: METOLAZONE
  5. VELTASSA [Suspect]
     Active Substance: PATIROMER
     Indication: SCHIZOAFFECTIVE DISORDER
  6. FLOMAX [Concomitant]
     Active Substance: TAMSULOSIN HYDROCHLORIDE
  7. MIRALAX [Concomitant]
     Active Substance: POLYETHYLENE GLYCOL 3350
  8. CALCIUM ACETATE. [Concomitant]
     Active Substance: CALCIUM ACETATE
  9. NEPHRO-VITE [Concomitant]
  10. PHOSLO [Concomitant]
     Active Substance: CALCIUM ACETATE
  11. VITAMIN D [Concomitant]
     Active Substance: CHOLECALCIFEROL
  12. NEPRO WITH CARB STEADY [Concomitant]
  13. PHENOBARBITAL. [Concomitant]
     Active Substance: PHENOBARBITAL
  14. ACETAMINOPHEN. [Concomitant]
     Active Substance: ACETAMINOPHEN
  15. VELTASSA [Suspect]
     Active Substance: PATIROMER
     Indication: ESSENTIAL HYPERTENSION
  16. ANAFRANIL [Concomitant]
     Active Substance: CLOMIPRAMINE HYDROCHLORIDE
  17. ROZEREM [Concomitant]
     Active Substance: RAMELTEON
  18. VELTASSA [Suspect]
     Active Substance: PATIROMER
     Indication: HYPERKALAEMIA
     Route: 048
     Dates: start: 20170215
  19. SIMETHICONE (DIMETHICONE) [Concomitant]
     Active Substance: DIMETHICONE
  20. SYNTHROID [Concomitant]
     Active Substance: LEVOTHYROXINE SODIUM
  21. DEPAKOTE [Concomitant]
     Active Substance: DIVALPROEX SODIUM
  22. BENZTROPINE MESYLATE. [Concomitant]
     Active Substance: BENZTROPINE MESYLATE
  23. KLONOPIN [Concomitant]
     Active Substance: CLONAZEPAM
  24. SODIUM POLYSTYRENE SULFONATE. [Concomitant]
     Active Substance: SODIUM POLYSTYRENE SULFONATE
  25. LACTULOSE. [Concomitant]
     Active Substance: LACTULOSE

REACTIONS (2)
  - Hospitalisation [Unknown]
  - Off label use [Recovered/Resolved]
